FAERS Safety Report 10359501 (Version 2)
Quarter: 2014Q3

REPORT INFORMATION
  Report Type: Spontaneous
  Country: US (occurrence: US)
  Receive Date: 20140804
  Receipt Date: 20140804
  Transmission Date: 20150326
  Serious: Yes (Death)
  Sender: FDA-Public Use
  Company Number: PHHY2014US035318

PATIENT
  Age: 81 Year
  Sex: Male

DRUGS (3)
  1. JAKAFI [Suspect]
     Active Substance: RUXOLITINIB
     Indication: MYELODYSPLASTIC SYNDROME
     Dosage: 5 MG, QOD
     Route: 048
     Dates: start: 20131021, end: 20131108
  2. JAKAFI [Suspect]
     Active Substance: RUXOLITINIB
     Indication: OFF LABEL USE
  3. EXJADE [Suspect]
     Active Substance: DEFERASIROX
     Indication: MYELODYSPLASTIC SYNDROME
     Dosage: 2500 MG, QD
     Route: 048
     Dates: start: 20100614, end: 20131108

REACTIONS (5)
  - Bacterial infection [Fatal]
  - Splenomegaly [Unknown]
  - Malaise [Unknown]
  - Platelet count decreased [Unknown]
  - Immunosuppression [Fatal]
